FAERS Safety Report 18478133 (Version 1)
Quarter: 2020Q4

REPORT INFORMATION
  Report Type: Spontaneous
  Country: US (occurrence: US)
  Receive Date: 20201108
  Receipt Date: 20201108
  Transmission Date: 20210114
  Serious: Yes (Other)
  Sender: FDA-Public Use
  Company Number: US-DRREDDYS-USA/USA/20/0128766

PATIENT
  Age: 53 Year
  Sex: Female

DRUGS (8)
  1. CYCLOSPORINE. [Suspect]
     Active Substance: CYCLOSPORINE
     Indication: IDIOPATHIC ANGIOEDEMA
  2. ICATIBANT [Suspect]
     Active Substance: ICATIBANT ACETATE
     Indication: IDIOPATHIC ANGIOEDEMA
  3. PREDNISONE. [Concomitant]
     Active Substance: PREDNISONE
     Indication: PRODUCT USED FOR UNKNOWN INDICATION
  4. OMALIZUMAB. [Suspect]
     Active Substance: OMALIZUMAB
     Indication: IDIOPATHIC ANGIOEDEMA
  5. PREDNISONE. [Concomitant]
     Active Substance: PREDNISONE
  6. MONTELUKAST [Suspect]
     Active Substance: MONTELUKAST SODIUM
     Indication: IDIOPATHIC ANGIOEDEMA
  7. MYCOPHENOLATE MOFETIL. [Suspect]
     Active Substance: MYCOPHENOLATE MOFETIL
     Indication: IDIOPATHIC ANGIOEDEMA
  8. DAPSONE. [Concomitant]
     Active Substance: DAPSONE
     Indication: PRODUCT USED FOR UNKNOWN INDICATION

REACTIONS (1)
  - Drug ineffective [Unknown]
